FAERS Safety Report 8802568 (Version 1)
Quarter: 2012Q4

REPORT INFORMATION
  Report Type: 
  Country: PH (occurrence: PH)
  Receive Date: 20120921
  Receipt Date: 20120921
  Transmission Date: 20130627
  Serious: Yes (Death, Life-Threatening, Hospitalization)
  Sender: FDA-Public Use
  Company Number: PHHO2007PH05735

PATIENT
  Age: 49 Year
  Sex: Male
  Weight: 80 kg

DRUGS (2)
  1. GLIVEC [Suspect]
     Indication: CHRONIC MYELOID LEUKAEMIA
     Dosage: 400 mg, QD
     Route: 048
     Dates: start: 20050707
  2. GLIVEC [Suspect]
     Dosage: 300 mg, QD
     Route: 048
     Dates: end: 20070207

REACTIONS (15)
  - Chronic myeloid leukaemia [Fatal]
  - Malignant neoplasm progression [Fatal]
  - Blast crisis in myelogenous leukaemia [Not Recovered/Not Resolved]
  - Sepsis [Unknown]
  - Multi-organ failure [Unknown]
  - Respiratory failure [Fatal]
  - Respiratory tract infection [Unknown]
  - Oedema peripheral [Unknown]
  - Anaemia [Unknown]
  - Thrombocytopenia [Unknown]
  - Leukocytosis [Unknown]
  - Pneumonia [Unknown]
  - Alanine aminotransferase increased [Unknown]
  - Hypersensitivity [Recovered/Resolved]
  - Leukopenia [Unknown]
